FAERS Safety Report 18076744 (Version 4)
Quarter: 2022Q4

REPORT INFORMATION
  Report Type: Report from Study
  Country: US (occurrence: US)
  Receive Date: 20200727
  Receipt Date: 20221024
  Transmission Date: 20230112
  Serious: Yes (Other)
  Sender: FDA-Public Use
  Company Number: US-BAUSCH-BL-2020-020858

PATIENT
  Age: 76 Year
  Sex: Female
  Weight: 61.290 kg

DRUGS (13)
  1. XIFAXAN [Suspect]
     Active Substance: RIFAXIMIN
     Indication: Hepatic encephalopathy
     Route: 048
     Dates: start: 20191211, end: 202007
  2. XIFAXAN [Suspect]
     Active Substance: RIFAXIMIN
     Indication: Hepato-lenticular degeneration
     Route: 048
     Dates: start: 202005
  3. SYPRINE [Suspect]
     Active Substance: TRIENTINE HYDROCHLORIDE
     Indication: Hepato-lenticular degeneration
     Dosage: STARTED ABOUT 5 YEARS AGO
     Route: 048
     Dates: start: 2015
  4. SYPRINE [Suspect]
     Active Substance: TRIENTINE HYDROCHLORIDE
     Dosage: INCREASED DOSE TO 2 CAPSULES IN MORNING, 2 CAPSULES IN AFTERNOON AND 1 CAPSULE IN EVENING
     Route: 048
  5. SYPRINE [Suspect]
     Active Substance: TRIENTINE HYDROCHLORIDE
     Dosage: INCREASED DOSE TO 2 CAPSULES IN MORNING, 2 CAPSULES IN AFTERNOON AND 1 CAPSULE IN EVENING
     Route: 048
     Dates: start: 202005
  6. SYPRINE [Suspect]
     Active Substance: TRIENTINE HYDROCHLORIDE
     Route: 048
  7. POTASSIUM [Concomitant]
     Active Substance: POTASSIUM
     Indication: Product used for unknown indication
  8. FLONASE [Concomitant]
     Active Substance: FLUTICASONE PROPIONATE
     Indication: Product used for unknown indication
  9. SKELAXIN [Concomitant]
     Active Substance: METAXALONE
     Indication: Product used for unknown indication
  10. LACTULOSE [Concomitant]
     Active Substance: LACTULOSE
     Indication: Product used for unknown indication
  11. ALPHAGAN P [Concomitant]
     Active Substance: BRIMONIDINE TARTRATE
     Indication: Product used for unknown indication
  12. AMLODIPINE [Concomitant]
     Active Substance: AMLODIPINE BESYLATE
     Indication: Product used for unknown indication
  13. VITAMINS [Concomitant]
     Active Substance: VITAMINS
     Indication: Product used for unknown indication

REACTIONS (9)
  - Hepatic cirrhosis [Not Recovered/Not Resolved]
  - Blood copper increased [Recovering/Resolving]
  - Loss of personal independence in daily activities [Recovered/Resolved]
  - Fatigue [Recovered/Resolved]
  - Memory impairment [Not Recovered/Not Resolved]
  - Asthenia [Recovered/Resolved]
  - Therapeutic product effect incomplete [Unknown]
  - Product use issue [Unknown]
  - Product distribution issue [Unknown]

NARRATIVE: CASE EVENT DATE: 20181128
